FAERS Safety Report 20480912 (Version 1)
Quarter: 2022Q1

REPORT INFORMATION
  Report Type: Spontaneous
  Country: US (occurrence: None)
  Receive Date: 20220216
  Receipt Date: 20220216
  Transmission Date: 20220423
  Serious: Yes (Hospitalization)
  Sender: FDA-Public Use
  Company Number: None

PATIENT
  Sex: Female
  Weight: 83.3 kg

DRUGS (7)
  1. CYTARABINE [Suspect]
     Active Substance: CYTARABINE
  2. MERCAPTOPURINE [Concomitant]
     Active Substance: MERCAPTOPURINE
  3. ONCASPAR [Concomitant]
     Active Substance: PEGASPARGASE
  4. CYCLOPHOSPHAMIDE [Concomitant]
  5. METHOTREXATE [Concomitant]
     Active Substance: METHOTREXATE
  6. RITUXIMAB (MOAB C2B8 ANTI CD20, CHIMERIC) [Concomitant]
  7. VINCRISTINE SULFATE [Concomitant]
     Active Substance: VINCRISTINE SULFATE

REACTIONS (11)
  - Nausea [None]
  - Vomiting [None]
  - Diarrhoea [None]
  - Pyrexia [None]
  - Chills [None]
  - Oropharyngeal pain [None]
  - Neutrophil count decreased [None]
  - Blood culture positive [None]
  - Escherichia bacteraemia [None]
  - Beta haemolytic streptococcal infection [None]
  - Culture throat [None]

NARRATIVE: CASE EVENT DATE: 20220206
